FAERS Safety Report 5080158-4 (Version None)
Quarter: 2006Q3

REPORT INFORMATION
  Report Type: 
  Country: None (occurrence: None)
  Receive Date: 20060810
  Receipt Date: 20060726
  Transmission Date: 20061208
  Serious: No
  Sender: FDA-Public Use
  Company Number: 2006S1006917

PATIENT
  Age: 56 Year
  Sex: Female
  Weight: 68.0396 kg

DRUGS (7)
  1. EXTENDED PHENYTOIN SODIUM [Suspect]
     Indication: GRAND MAL CONVULSION
     Dosage: 200 MG; QAM; PO;  100 MG; HS; PO
     Route: 048
     Dates: start: 20060703
  2. EXTENDED PHENYTOIN SODIUM [Suspect]
     Indication: GRAND MAL CONVULSION
     Dosage: 200 MG; QAM; PO;  100 MG; HS; PO
     Route: 048
     Dates: start: 20060703
  3. RAMIPRIL (CON.) [Concomitant]
  4. VYTORIN (CON.) [Concomitant]
  5. FOLIC ACID (CON.) [Concomitant]
  6. CITALOPRAM HYDROBROMIDE (CON.) [Concomitant]
  7. ACETYLSALICYLIC ACID (CON.) [Concomitant]

REACTIONS (2)
  - ANTICONVULSANT DRUG LEVEL BELOW THERAPEUTIC [None]
  - GRAND MAL CONVULSION [None]
